FAERS Safety Report 12597871 (Version 2)
Quarter: 2016Q3

REPORT INFORMATION
  Report Type: Spontaneous
  Country: US (occurrence: US)
  Receive Date: 20160727
  Receipt Date: 20160829
  Transmission Date: 20161109
  Serious: Yes (Other)
  Sender: FDA-Public Use
  Company Number: US-PFIZER INC-2016358860

PATIENT
  Age: 51 Year
  Sex: Female
  Weight: 81.65 kg

DRUGS (3)
  1. VENLAFAXINE HCL [Suspect]
     Active Substance: VENLAFAXINE HYDROCHLORIDE
     Indication: DEPRESSION
  2. VENLAFAXINE HCL [Suspect]
     Active Substance: VENLAFAXINE HYDROCHLORIDE
     Indication: MENOPAUSE
     Dosage: 75 MG, 1X/DAY
     Route: 048
     Dates: start: 20160620, end: 20160624
  3. VENLAFAXINE HCL [Suspect]
     Active Substance: VENLAFAXINE HYDROCHLORIDE
     Indication: PANIC ATTACK

REACTIONS (10)
  - Nervousness [Recovered/Resolved]
  - Heart rate increased [Recovered/Resolved]
  - Lung disorder [Recovered/Resolved]
  - Product colour issue [Recovered/Resolved]
  - Hypersensitivity [Recovered/Resolved]
  - Blood pressure increased [Recovered/Resolved]
  - Pain [Recovered/Resolved]
  - Feeling abnormal [Recovered/Resolved]
  - Musculoskeletal pain [Recovered/Resolved]
  - Myalgia [Recovered/Resolved]

NARRATIVE: CASE EVENT DATE: 20160624
